FAERS Safety Report 6447501-2 (Version None)
Quarter: 2009Q4

REPORT INFORMATION
  Report Type: 
  Country: None (occurrence: None)
  Receive Date: 20091119
  Receipt Date: 20081123
  Transmission Date: 20100525
  Serious: Yes (Other)
  Sender: FDA-Public Use
  Company Number: US-AMGEN-KDL275868

PATIENT
  Sex: Female

DRUGS (3)
  1. ENBREL [Suspect]
     Indication: RHEUMATOID ARTHRITIS
     Route: 058
     Dates: start: 20070322
  2. METHOTREXATE [Concomitant]
  3. PLAQUENIL [Concomitant]

REACTIONS (7)
  - BLOOD URINE PRESENT [None]
  - HYPOAESTHESIA [None]
  - NORMAL PRESSURE HYDROCEPHALUS [None]
  - PAIN IN EXTREMITY [None]
  - SINUS HEADACHE [None]
  - VOMITING [None]
  - WEIGHT DECREASED [None]
